FAERS Safety Report 24624391 (Version 1)
Quarter: 2024Q4

REPORT INFORMATION
  Report Type: Spontaneous
  Country: US (occurrence: None)
  Receive Date: 20241114
  Receipt Date: 20241114
  Transmission Date: 20250114
  Serious: Yes (Death, Hospitalization, Disabling, Other)
  Sender: Public
  Company Number: None

PATIENT
  Sex: Female

DRUGS (1)
  1. TESTOSTERONE CYPIONATE [Suspect]
     Active Substance: TESTOSTERONE CYPIONATE
     Dosage: OTHER FREQUENCY : WEEKLY;?
     Route: 030
     Dates: start: 20190404, end: 20230407

REACTIONS (5)
  - Acute respiratory failure [None]
  - Endometrial cancer [None]
  - Metastases to central nervous system [None]
  - Metastases to liver [None]
  - Metastases to lung [None]
